FAERS Safety Report 15690749 (Version 1)
Quarter: 2018Q4

REPORT INFORMATION
  Report Type: Spontaneous
  Country: US (occurrence: US)
  Receive Date: 20181205
  Receipt Date: 20181205
  Transmission Date: 20190205
  Serious: No
  Sender: FDA-Public Use
  Company Number: US-PFIZER INC-2018499965

PATIENT
  Age: 58 Year
  Sex: Female

DRUGS (1)
  1. GENOTROPIN MQ [Suspect]
     Active Substance: SOMATROPIN
     Dosage: 1.2 MG, DAILY

REACTIONS (4)
  - Tri-iodothyronine free increased [Unknown]
  - Blood 25-hydroxycholecalciferol decreased [Unknown]
  - Serum ferritin decreased [Unknown]
  - Oestradiol decreased [Unknown]

NARRATIVE: CASE EVENT DATE: 201801
